FAERS Safety Report 18781602 (Version 1)
Quarter: 2021Q1

REPORT INFORMATION
  Report Type: Spontaneous
  Country: US (occurrence: US)
  Receive Date: 20210125
  Receipt Date: 20210125
  Transmission Date: 20210419
  Serious: Yes (Other)
  Sender: FDA-Public Use
  Company Number: None

PATIENT
  Age: 66 Year
  Sex: Female
  Weight: 75.6 kg

DRUGS (22)
  1. LUMIGAN [Concomitant]
     Active Substance: BIMATOPROST
  2. COLACE [Concomitant]
     Active Substance: DOCUSATE SODIUM
  3. MIRALAX [Concomitant]
     Active Substance: POLYETHYLENE GLYCOL 3350
  4. PROLIA [Suspect]
     Active Substance: DENOSUMAB
     Indication: OSTEOPOROSIS
     Dosage: ?          QUANTITY:1 INJECTION(S);OTHER FREQUENCY:ONCE EVERY 6 MOS;?
     Route: 030
  5. OMEPRAZOLE. [Concomitant]
     Active Substance: OMEPRAZOLE
  6. GABAPENTIN. [Concomitant]
     Active Substance: GABAPENTIN
  7. ELIQUIS [Concomitant]
     Active Substance: APIXABAN
  8. LEXAPRO [Concomitant]
     Active Substance: ESCITALOPRAM OXALATE
  9. RIZATRIPTAN. [Concomitant]
     Active Substance: RIZATRIPTAN
  10. TYLENOL [Concomitant]
     Active Substance: ACETAMINOPHEN
  11. HYOSCYAMINE. [Concomitant]
     Active Substance: HYOSCYAMINE
  12. CALCIUM?MAGNESIUM?ZINC [Concomitant]
  13. CPAP WEAR [Concomitant]
     Active Substance: DEVICE
  14. PROPRANOLOL [Concomitant]
     Active Substance: PROPRANOLOL HYDROCHLORIDE
  15. TRAZODONE [Concomitant]
     Active Substance: TRAZODONE HYDROCHLORIDE
  16. VITAMIN D [Concomitant]
     Active Substance: VITAMIN D NOS
  17. ROSUVASTATIN. [Concomitant]
     Active Substance: ROSUVASTATIN
  18. HYDROXYZINE [Concomitant]
     Active Substance: HYDROXYZINE HYDROCHLORIDE
  19. BCOMPLEX W/C [Concomitant]
  20. OXYCODNE?ACETAMINOPHEN [Concomitant]
  21. BACLOFEN. [Concomitant]
     Active Substance: BACLOFEN
  22. VITAMIN E [Concomitant]
     Active Substance: .ALPHA.-TOCOPHEROL

REACTIONS (4)
  - Arthralgia [None]
  - Tooth disorder [None]
  - Pain in jaw [None]
  - Myalgia [None]

NARRATIVE: CASE EVENT DATE: 20201201
